FAERS Safety Report 10169027 (Version 1)
Quarter: 2014Q2

REPORT INFORMATION
  Report Type: Spontaneous
  Country: US (occurrence: None)
  Receive Date: 20140509
  Receipt Date: 20140509
  Transmission Date: 20141212
  Serious: Yes (Other)
  Sender: FDA-Public Use
  Company Number: UTC-045296

PATIENT
  Age: 21 Year
  Sex: Female
  Weight: 50.8 kg

DRUGS (4)
  1. REMODULIN [Suspect]
     Indication: COR PULMONALE CHRONIC
     Route: 041
     Dates: start: 2008
  2. REMODULIN [Suspect]
     Indication: HEART DISEASE CONGENITAL
     Route: 041
     Dates: start: 2008
  3. TRACLEER(BOSENTAN) [Concomitant]
  4. FLOLAN(EPOPROSTENOL SODIUM) [Concomitant]

REACTIONS (4)
  - Device related infection [None]
  - Device alarm issue [None]
  - Injection site discharge [None]
  - Thrombosis in device [None]
